FAERS Safety Report 17534589 (Version 11)
Quarter: 2024Q1

REPORT INFORMATION
  Report Type: Spontaneous
  Country: US (occurrence: US)
  Receive Date: 20200312
  Receipt Date: 20240207
  Transmission Date: 20240410
  Serious: No
  Sender: FDA-Public Use
  Company Number: US-PFIZER INC-2020109163

PATIENT
  Age: 67 Year
  Sex: Female
  Weight: 68.04 kg

DRUGS (3)
  1. IBRANCE [Suspect]
     Active Substance: PALBOCICLIB
     Indication: Breast cancer female
     Dosage: 125 MG, CYCLIC (FOR 21 DAYS AND THE OFF 7 DAYS)
     Dates: start: 202003
  2. IBRANCE [Suspect]
     Active Substance: PALBOCICLIB
     Dosage: 100 MG, CYCLIC (ONE TAB DAILY FOR 21 DAYS THEN REST FOR 7 DAYS)
     Route: 048
     Dates: start: 202003
  3. IBRANCE [Suspect]
     Active Substance: PALBOCICLIB
     Dosage: 75 MG, CYCLIC (ONE TAB DAILY FOR 21 DAYS THEN REST FOR 7 DAYS)
     Route: 048

REACTIONS (9)
  - Nervousness [Unknown]
  - Anxiety [Unknown]
  - Nausea [Unknown]
  - Constipation [Not Recovered/Not Resolved]
  - Alopecia [Not Recovered/Not Resolved]
  - Dysphagia [Unknown]
  - White blood cell count decreased [Unknown]
  - Intentional product use issue [Unknown]
  - Blood test abnormal [Unknown]

NARRATIVE: CASE EVENT DATE: 20200401
